FAERS Safety Report 12666514 (Version 1)
Quarter: 2016Q3

REPORT INFORMATION
  Report Type: Spontaneous
  Country: US (occurrence: US)
  Receive Date: 20160819
  Receipt Date: 20160819
  Transmission Date: 20161109
  Serious: No
  Sender: FDA-Public Use
  Company Number: US-ELI_LILLY_AND_COMPANY-US201608007200

PATIENT
  Age: 88 Year
  Sex: Female

DRUGS (2)
  1. CALCIUM [Concomitant]
     Active Substance: CALCIUM
  2. FORTEO [Suspect]
     Active Substance: TERIPARATIDE
     Indication: OSTEOPOROSIS
     Dosage: UNK UNK, QD
     Route: 065
     Dates: start: 20160629

REACTIONS (5)
  - Arthralgia [Unknown]
  - Dizziness [Unknown]
  - Dyspnoea [Unknown]
  - Joint swelling [Unknown]
  - Nausea [Unknown]

NARRATIVE: CASE EVENT DATE: 20160810
